FAERS Safety Report 4905698-7 (Version None)
Quarter: 2006Q1

REPORT INFORMATION
  Report Type: 
  Country: None (occurrence: None)
  Receive Date: 20060203
  Receipt Date: 20060118
  Transmission Date: 20060701
  Serious: Yes (Hospitalization)
  Sender: FDA-Public Use
  Company Number: 2006BI001217

PATIENT
  Age: 34 Year
  Sex: Male
  Weight: 122.4712 kg

DRUGS (2)
  1. AVONEX LYOPHILIZED [Suspect]
     Indication: MULTIPLE SCLEROSIS
     Dosage: 30 UG;QW;IM
     Route: 030
     Dates: start: 20020301, end: 20030101
  2. AVONEX LIQUID [Suspect]
     Indication: MULTIPLE SCLEROSIS
     Dosage: 30 UG;QW;IM
     Route: 030
     Dates: start: 20030101

REACTIONS (12)
  - ANTIBODY TEST ABNORMAL [None]
  - ASTHMA [None]
  - CONTUSION [None]
  - DEPRESSION [None]
  - DYSURIA [None]
  - FEELING HOT [None]
  - HEARING IMPAIRED [None]
  - IMMUNE SYSTEM DISORDER [None]
  - MULTIPLE SCLEROSIS RELAPSE [None]
  - POLLAKIURIA [None]
  - STOMATITIS [None]
  - VISUAL ACUITY REDUCED [None]
